FAERS Safety Report 5833427-1 (Version None)
Quarter: 2008Q3

REPORT INFORMATION
  Report Type: 
  Country: None (occurrence: None)
  Receive Date: 20080805
  Receipt Date: 20080728
  Transmission Date: 20090109
  Serious: Yes (Hospitalization)
  Sender: FDA-Public Use
  Company Number: PL-TEVA-175132ISR

PATIENT
  Sex: Male
  Weight: 80 kg

DRUGS (8)
  1. FOLINIC ACID [Suspect]
     Indication: COLORECTAL CANCER
     Dates: start: 20080703
  2. FLUOROURACIL [Suspect]
     Indication: COLORECTAL CANCER
     Dates: start: 20080703
  3. IRINOTECAN HCL [Suspect]
     Indication: COLORECTAL CANCER
     Dates: start: 20080703
  4. SUNITINIB (BLINDED TERAPY) [Suspect]
     Indication: COLORECTAL CANCER
     Dates: start: 20080703
  5. FENTANYL-100 [Concomitant]
     Indication: PAIN
  6. ONDANSETRON [Concomitant]
     Indication: VOMITING
     Dates: start: 20080703, end: 20080705
  7. METOCLOPRAMIDE [Concomitant]
     Indication: VOMITING
     Dates: start: 20080703, end: 20080705
  8. ATROPINE [Concomitant]
     Indication: PREMEDICATION
     Dates: start: 20080703, end: 20080703

REACTIONS (13)
  - BLOOD CREATININE INCREASED [None]
  - DEHYDRATION [None]
  - DIARRHOEA [None]
  - FIBRIN D DIMER INCREASED [None]
  - GENERAL PHYSICAL HEALTH DETERIORATION [None]
  - HYPERBILIRUBINAEMIA [None]
  - HYPONATRAEMIA [None]
  - NEUTROPENIA [None]
  - PAIN [None]
  - PULMONARY EMBOLISM [None]
  - RENAL IMPAIRMENT [None]
  - SEPSIS [None]
  - VOMITING [None]
